FAERS Safety Report 18932176 (Version 2)
Quarter: 2021Q4

REPORT INFORMATION
  Report Type: Report from Study
  Country: US (occurrence: US)
  Receive Date: 20210224
  Receipt Date: 20211015
  Transmission Date: 20220304
  Serious: No
  Sender: FDA-Public Use
  Company Number: NVSC2021US038773

PATIENT
  Sex: Female

DRUGS (1)
  1. ENTRESTO [Suspect]
     Active Substance: SACUBITRIL\VALSARTAN
     Indication: Cardiac failure
     Dosage: UNK UNK, UNKNOWN
     Route: 048
     Dates: start: 20201016

REACTIONS (3)
  - Weight fluctuation [Unknown]
  - Stress [Unknown]
  - Product dose omission issue [Unknown]
